FAERS Safety Report 10161590 (Version 3)
Quarter: 2014Q4

REPORT INFORMATION
  Report Type: Spontaneous
  Country: JP (occurrence: JP)
  Receive Date: 20140509
  Receipt Date: 20141126
  Transmission Date: 20150528
  Serious: Yes (Hospitalization, Disabling)
  Sender: FDA-Public Use
  Company Number: JP-009507513-1405JPN001800

PATIENT
  Age: 73 Year
  Sex: Male
  Weight: 71 kg

DRUGS (13)
  1. REBETOL [Suspect]
     Active Substance: RIBAVIRIN
     Dosage: 200 MG, QOD
     Route: 048
     Dates: start: 20140311, end: 20140324
  2. SIMEPREVIR [Suspect]
     Active Substance: SIMEPREVIR
     Indication: CHRONIC HEPATITIS C
     Dosage: 100 MG, QD
     Route: 048
     Dates: start: 20140107, end: 20140401
  3. PEGINTRON [Suspect]
     Active Substance: PEGINTERFERON ALFA-2B
     Indication: CHRONIC HEPATITIS C
     Dosage: 100 MICROGRAM PER KILOGRAM, QW
     Route: 058
     Dates: start: 20140107, end: 20140428
  4. FEBURIC [Concomitant]
     Active Substance: FEBUXOSTAT
     Indication: HYPERURICAEMIA
     Dosage: 10 MG PER DAY
     Route: 048
     Dates: start: 20140110, end: 20140414
  5. MERISLON [Concomitant]
     Active Substance: BETAHISTINE MESILATE
     Route: 048
  6. ANTEBATE [Concomitant]
     Active Substance: BETAMETHASONE DIPROPIONATE
     Route: 061
  7. REBETOL [Suspect]
     Active Substance: RIBAVIRIN
     Indication: CHRONIC HEPATITIS C
     Dosage: 400 MG, BID
     Route: 048
     Dates: start: 20140107, end: 20140203
  8. REBETOL [Suspect]
     Active Substance: RIBAVIRIN
     Dosage: 600 MG, QOD
     Route: 048
     Dates: start: 20140415, end: 20140427
  9. VALSARTAN AND HYDROCHLOROTHIAZIDE [Concomitant]
     Active Substance: HYDROCHLOROTHIAZIDE\VALSARTAN
     Indication: HYPERTENSION
     Dosage: 1 DF PER DAY
     Route: 048
     Dates: start: 1990
  10. REBETOL [Suspect]
     Active Substance: RIBAVIRIN
     Dosage: 200 MG, BID
     Route: 048
     Dates: start: 20140218, end: 20140303
  11. REBETOL [Suspect]
     Active Substance: RIBAVIRIN
     Dosage: 200 MG, QD
     Route: 048
     Dates: start: 20140325, end: 20140414
  12. JUVELA N [Concomitant]
     Active Substance: TOCOPHERYL NICOTINATE, D-.ALPHA.
     Indication: HYPERTENSION
     Dosage: 200 MG, BID
     Route: 048
  13. REBETOL [Suspect]
     Active Substance: RIBAVIRIN
     Dosage: 200MG + 400 MG, PER DAY
     Route: 048
     Dates: start: 20140204, end: 20140217

REACTIONS (2)
  - Cerebral infarction [Recovered/Resolved]
  - Haemoglobin decreased [Unknown]

NARRATIVE: CASE EVENT DATE: 2014
